FAERS Safety Report 6200063-7 (Version None)
Quarter: 2009Q2

REPORT INFORMATION
  Report Type: 
  Country: None (occurrence: None)
  Receive Date: 20090522
  Receipt Date: 20070601
  Transmission Date: 20091009
  Serious: No
  Sender: FDA-Public Use
  Company Number: US-ALEXION-A200700010

PATIENT
  Sex: Female

DRUGS (1)
  1. SOLIRIS [Suspect]

REACTIONS (1)
  - HEADACHE [None]
